FAERS Safety Report 8104542-7 (Version None)
Quarter: 2012Q1

REPORT INFORMATION
  Report Type: 
  Country: None (occurrence: None)
  Receive Date: 20120201
  Receipt Date: 20120123
  Transmission Date: 20120608
  Serious: Yes (Hospitalization, Disabling)
  Sender: FDA-Public Use
  Company Number: US-MERCK-1108USA02440

PATIENT
  Age: 60 Year
  Sex: Female

DRUGS (7)
  1. VITAMINS (UNSPECIFIED) [Concomitant]
     Route: 065
     Dates: start: 19900101
  2. ASCORBIC ACID [Concomitant]
     Route: 065
     Dates: start: 20000101
  3. ALENDRONATE SODIUM [Suspect]
     Indication: OSTEOPOROSIS
     Route: 048
     Dates: start: 20080630, end: 20091201
  4. FOSAMAX [Suspect]
     Indication: OSTEOPENIA
     Route: 048
     Dates: start: 20000101, end: 20050622
  5. CALCIUM (UNSPECIFIED) AND VITAMIN D (UNSPECIFIED) [Concomitant]
     Route: 065
     Dates: start: 19950101
  6. BONIVA [Suspect]
     Indication: OSTEOPOROSIS
     Route: 048
     Dates: start: 20050622, end: 20080501
  7. FOSAMAX [Suspect]
     Indication: OSTEOPOROSIS
     Route: 048
     Dates: start: 20080630, end: 20091201

REACTIONS (20)
  - DIABETES MELLITUS [None]
  - TRIGGER FINGER [None]
  - SPONDYLOLISTHESIS [None]
  - BASEDOW'S DISEASE [None]
  - HYPERTENSION [None]
  - LOW TURNOVER OSTEOPATHY [None]
  - ARTHRALGIA [None]
  - JOINT INJURY [None]
  - VERTEBRAL FORAMINAL STENOSIS [None]
  - RHINITIS ALLERGIC [None]
  - INTERVERTEBRAL DISC PROTRUSION [None]
  - ADVERSE EVENT [None]
  - CARPAL TUNNEL SYNDROME [None]
  - FEMUR FRACTURE [None]
  - BLOOD CHOLESTEROL INCREASED [None]
  - HAEMORRHAGIC ANAEMIA [None]
  - BLOOD ALKALINE PHOSPHATASE INCREASED [None]
  - PLATELET COUNT INCREASED [None]
  - BLOOD CALCIUM INCREASED [None]
  - FRACTURE NONUNION [None]
